FAERS Safety Report 7201460-3 (Version None)
Quarter: 2010Q4

REPORT INFORMATION
  Report Type: 
  Country: None (occurrence: None)
  Receive Date: 20101229
  Receipt Date: 20101220
  Transmission Date: 20110411
  Serious: Yes (Life-Threatening, Hospitalization, Disabling)
  Sender: FDA-Public Use
  Company Number: KR-MPIJNJ-2010-06296

PATIENT

DRUGS (22)
  1. VELCADE [Suspect]
     Indication: MULTIPLE MYELOMA
     Dosage: UNK
     Route: 042
     Dates: start: 20100518
  2. VELCADE [Suspect]
     Dosage: 1.3 MG/M2, CYCLIC
     Route: 042
     Dates: start: 20100615, end: 20100618
  3. VELCADE [Suspect]
     Dosage: 1.0 MG/M2, UNK
     Route: 042
     Dates: start: 20100721, end: 20100731
  4. DEXAMETHASONE [Concomitant]
     Indication: MULTIPLE MYELOMA
     Dosage: 40 MG, CYCLIC
     Route: 042
     Dates: start: 20100721, end: 20100731
  5. ESOMEPRAZOLE [Concomitant]
     Indication: GASTRIC ULCER
     Dosage: UNK
     Route: 048
     Dates: start: 20100705
  6. MEGESTROL ACETATE [Concomitant]
     Dosage: 800 MG, UNK
     Route: 048
     Dates: start: 20100508, end: 20100803
  7. GABAPENTIN [Concomitant]
     Dosage: 600 MG, UNK
     Route: 048
     Dates: start: 20100628, end: 20100730
  8. ZOLPIDEM TARTRATE [Concomitant]
     Dosage: 5 MG, UNK
     Route: 048
     Dates: start: 20100704
  9. FUROSEMIDE [Concomitant]
     Dosage: 40 MG, BID
     Route: 048
     Dates: start: 20100710, end: 20100728
  10. PARACETAMOL [Concomitant]
     Dosage: UNK
     Route: 048
     Dates: start: 20100705, end: 20100725
  11. TRAMADOL [Concomitant]
     Route: 048
  12. LACTITOL [Concomitant]
     Route: 048
  13. HYDROCHLOROTHIAZIDE [Concomitant]
     Dosage: 12.5 MG, UNK
     Route: 048
  14. AMITRIPTYLINE [Concomitant]
     Dosage: 5 MG, UNK
     Route: 048
  15. ENOXAPARIN SODIUM [Concomitant]
     Dosage: 40 MG, UNK
  16. FLUCONAZOLE [Concomitant]
     Dosage: 50 MG, UNK
     Route: 048
  17. SEPTRIN [Concomitant]
     Dosage: 960 MG, UNK
     Route: 048
  18. CIPROFLOXACIN [Concomitant]
     Dosage: 500 MG, UNK
     Route: 048
  19. ALBUMIN (HUMAN) [Concomitant]
     Dosage: 100 IU, UNK
     Route: 042
  20. POTASSIUM CHLORIDE [Concomitant]
     Dosage: 1200 MG, UNK
     Route: 048
  21. CALCIUM POLYSTYRENE SULFONATE [Concomitant]
     Route: 048
  22. TIROPRAMIDE HYDROCHLORIDE [Concomitant]
     Indication: DIARRHOEA
     Dosage: 50 MG, UNK
     Route: 042

REACTIONS (3)
  - ADRENAL INSUFFICIENCY [None]
  - HYPERKALAEMIA [None]
  - PERIPHERAL MOTOR NEUROPATHY [None]
